FAERS Safety Report 8261619-3 (Version None)
Quarter: 2012Q2

REPORT INFORMATION
  Report Type: 
  Country: None (occurrence: None)
  Receive Date: 20120405
  Receipt Date: 20120327
  Transmission Date: 20120825
  Serious: Yes (Hospitalization)
  Sender: FDA-Public Use
  Company Number: US-MYLANLABS-2012S1006656

PATIENT
  Age: 78 Year
  Sex: Male

DRUGS (1)
  1. METOPROLOL TARTRATE [Suspect]
     Indication: EXTRASYSTOLES
     Route: 048

REACTIONS (2)
  - BRADYCARDIA [None]
  - SYNCOPE [None]
